FAERS Safety Report 17029606 (Version 1)
Quarter: 2019Q4

REPORT INFORMATION
  Report Type: Spontaneous
  Country: BE (occurrence: BE)
  Receive Date: 20191114
  Receipt Date: 20191114
  Transmission Date: 20200122
  Serious: Yes (Other)
  Sender: FDA-Public Use
  Company Number: BE-GLAXOSMITHKLINE-BE2019203957

PATIENT
  Sex: Female

DRUGS (2)
  1. ANTIBIOTIC (DETAILS UNKNOWN) [Concomitant]
     Indication: ERYSIPELAS
     Dosage: UNK
  2. VOLTAREN EMULGEL FORTE 2% [DICLOFENAC DIETHYLAMMONIUM SALT} [Suspect]
     Active Substance: DICLOFENAC DIETHYLAMINE
     Indication: PRODUCT USED FOR UNKNOWN INDICATION
     Dosage: UNK

REACTIONS (3)
  - Rash [Unknown]
  - Erysipelas [Unknown]
  - Hypersensitivity [Unknown]
